FAERS Safety Report 11429268 (Version 1)
Quarter: 2015Q3

REPORT INFORMATION
  Report Type: Spontaneous
  Country: US (occurrence: US)
  Receive Date: 20150828
  Receipt Date: 20150828
  Transmission Date: 20151125
  Serious: No
  Sender: FDA-Public Use
  Company Number: US-ROCHE-1179763

PATIENT
  Age: 56 Year
  Sex: Female

DRUGS (3)
  1. PEGASYS [Suspect]
     Active Substance: PEGINTERFERON ALFA-2A
     Indication: CHRONIC HEPATITIS C
     Route: 058
     Dates: start: 20130111
  2. AMLODIPINE [Concomitant]
     Active Substance: AMLODIPINE BESYLATE
     Route: 065
  3. RIBASPHERE [Suspect]
     Active Substance: RIBAVIRIN
     Indication: CHRONIC HEPATITIS C
     Dosage: DIVIDED DOSE 600/600
     Route: 065
     Dates: start: 20130111

REACTIONS (10)
  - Chills [Unknown]
  - Depression [Unknown]
  - Vision blurred [Not Recovered/Not Resolved]
  - Myalgia [Unknown]
  - Feeling of body temperature change [Unknown]
  - Anxiety [Unknown]
  - Fatigue [Unknown]
  - Overdose [Unknown]
  - Blood potassium decreased [Unknown]
  - Psychiatric symptom [Unknown]

NARRATIVE: CASE EVENT DATE: 20130114
